FAERS Safety Report 19447528 (Version 1)
Quarter: 2021Q2

REPORT INFORMATION
  Report Type: Spontaneous
  Country: US (occurrence: US)
  Receive Date: 20210621
  Receipt Date: 20210621
  Transmission Date: 20210717
  Serious: No
  Sender: FDA-Public Use
  Company Number: None

PATIENT
  Sex: Male
  Weight: 65.25 kg

DRUGS (1)
  1. CAPECITABINE. [Suspect]
     Active Substance: CAPECITABINE
     Indication: PROSTATE CANCER
     Dosage: ?          OTHER FREQUENCY:BID X14 OF 21 DAYS;?
     Route: 048
     Dates: start: 20201013, end: 20210618

REACTIONS (1)
  - Disease progression [None]
